FAERS Safety Report 19384142 (Version 2)
Quarter: 2021Q3

REPORT INFORMATION
  Report Type: Spontaneous
  Country: JP (occurrence: JP)
  Receive Date: 20210608
  Receipt Date: 20210705
  Transmission Date: 20211014
  Serious: Yes (Other)
  Sender: FDA-Public Use
  Company Number: JP-AMGEN-JPNSP2021084584

PATIENT
  Age: 80 Year
  Sex: Female

DRUGS (5)
  1. PRALIA [Concomitant]
     Active Substance: DENOSUMAB
     Indication: OSTEOPOROSIS
     Dosage: UNK
     Route: 065
     Dates: start: 202105
  2. BONVIVA [IBANDRONATE SODIUM] [Concomitant]
     Indication: OSTEOPOROSIS
     Dosage: UNK
     Dates: start: 202103, end: 202105
  3. TAKECAB [Concomitant]
     Active Substance: VONOPRAZAN FUMARATE
  4. EVENITY [Suspect]
     Active Substance: ROMOSOZUMAB-AQQG
     Indication: OSTEOPOROSIS
     Dosage: 210 MILLIGRAM, QMO
     Route: 058
     Dates: start: 20210228, end: 202105
  5. AMLODIN [Concomitant]
     Active Substance: AMLODIPINE BESYLATE

REACTIONS (2)
  - Compression fracture [Not Recovered/Not Resolved]
  - Muscular weakness [Not Recovered/Not Resolved]

NARRATIVE: CASE EVENT DATE: 2021
